FAERS Safety Report 6051993-0 (Version None)
Quarter: 2009Q1

REPORT INFORMATION
  Report Type: 
  Country: None (occurrence: None)
  Receive Date: 20090126
  Receipt Date: 20090120
  Transmission Date: 20090719
  Serious: Yes (Hospitalization)
  Sender: FDA-Public Use
  Company Number: FR-ASTRAZENECA-2009CG00236

PATIENT
  Age: 32516 Day
  Sex: Female

DRUGS (9)
  1. TENORMIN [Suspect]
     Route: 048
  2. CORDARONE [Suspect]
     Dates: start: 20071201, end: 20081203
  3. COVERSYL [Concomitant]
  4. KARDEGIC [Concomitant]
  5. INIPOMP [Concomitant]
  6. HYPERIUM [Concomitant]
  7. ATORVASTATIN CALCIUM [Concomitant]
  8. PROZAC [Concomitant]
  9. LEVOTHYROX [Concomitant]

REACTIONS (3)
  - BRADYCARDIA [None]
  - LOSS OF CONSCIOUSNESS [None]
  - MALAISE [None]
